FAERS Safety Report 11047303 (Version 1)
Quarter: 2015Q2

REPORT INFORMATION
  Report Type: Spontaneous
  Country: IT (occurrence: IT)
  Receive Date: 20150420
  Receipt Date: 20150420
  Transmission Date: 20150821
  Serious: Yes (Other)
  Sender: FDA-Public Use
  Company Number: IT-SA-2015SA049229

PATIENT
  Age: 81 Year
  Sex: Female

DRUGS (7)
  1. HYDROCHLOROTHIAZIDE/IRBESARTAN [Suspect]
     Active Substance: HYDROCHLOROTHIAZIDE\IRBESARTAN
     Indication: HYPERTENSION
     Route: 048
     Dates: start: 20150101, end: 20150309
  2. BISOPROLOL FUMARATE. [Concomitant]
     Active Substance: BISOPROLOL FUMARATE
     Route: 048
  3. DOXAZOSIN [Concomitant]
     Active Substance: DOXAZOSIN\DOXAZOSIN MESYLATE
     Route: 048
  4. FUROSEMIDE. [Suspect]
     Active Substance: FUROSEMIDE
     Indication: ANURIA
     Route: 048
     Dates: start: 20150101, end: 20150309
  5. ZUGLIMET [Concomitant]
     Active Substance: METFORMIN HYDROCHLORIDE
     Route: 048
  6. PRAVASTATIN [Concomitant]
     Active Substance: PRAVASTATIN\PRAVASTATIN SODIUM
     Route: 048
  7. GLIMEPIRIDE. [Concomitant]
     Active Substance: GLIMEPIRIDE
     Dosage: DOSE:0.5 UNIT(S)
     Route: 048

REACTIONS (5)
  - Hypokalaemia [Recovering/Resolving]
  - Hyponatraemia [Recovering/Resolving]
  - Syncope [Recovering/Resolving]
  - Head injury [Recovering/Resolving]
  - Facial bones fracture [Recovering/Resolving]

NARRATIVE: CASE EVENT DATE: 20150309
